FAERS Safety Report 9889764 (Version 1)
Quarter: 2014Q1

REPORT INFORMATION
  Report Type: Spontaneous
  Country: JP (occurrence: JP)
  Receive Date: 20140211
  Receipt Date: 20140211
  Transmission Date: 20141002
  Serious: Yes (Other)
  Sender: FDA-Public Use
  Company Number: CHPA2014JP002063

PATIENT
  Sex: Male

DRUGS (2)
  1. NICOTINELL TTS [Suspect]
     Dosage: UNK
     Route: 062
  2. NICOTINELL GUM [Suspect]
     Dosage: UNK
     Route: 048

REACTIONS (8)
  - Drug dependence [Unknown]
  - Tremor [Unknown]
  - Anxiety [Unknown]
  - Chest discomfort [Unknown]
  - Decreased appetite [Unknown]
  - Constipation [Unknown]
  - Wrong technique in drug usage process [Unknown]
  - Incorrect drug administration duration [Unknown]
